FAERS Safety Report 20424648 (Version 1)
Quarter: 2022Q1

REPORT INFORMATION
  Report Type: Report from Study
  Country: CN (occurrence: CN)
  Receive Date: 20220203
  Receipt Date: 20220203
  Transmission Date: 20220423
  Serious: Yes (Other)
  Sender: FDA-Public Use
  Company Number: CN-QILU PHARMACEUTICAL (HAINAN) CO., LTD.-QLH-000022-2022

PATIENT
  Age: 58 Year
  Sex: Male

DRUGS (1)
  1. DECITABINE [Suspect]
     Active Substance: DECITABINE
     Indication: Refractory cytopenia with multilineage dysplasia
     Dosage: 15 MILLIGRAM/SQ. METER, QD, FOR 5 DAYS,
     Route: 041

REACTIONS (4)
  - Cardiac failure [Unknown]
  - Bacteraemia [Unknown]
  - Pneumonia [Unknown]
  - Myelosuppression [Unknown]
